FAERS Safety Report 18510496 (Version 1)
Quarter: 2020Q4

REPORT INFORMATION
  Report Type: Report from Study
  Country: CA (occurrence: CA)
  Receive Date: 20201117
  Receipt Date: 20201117
  Transmission Date: 20210114
  Serious: Yes (Hospitalization)
  Sender: FDA-Public Use
  Company Number: CA-GLAXOSMITHKLINE-CA2019AMR187827

PATIENT
  Sex: Male

DRUGS (5)
  1. SALBUTAMOL SULPHATE [Suspect]
     Active Substance: ALBUTEROL SULFATE
     Indication: ASTHMA
     Dosage: UNK,1-2 PUFF PRN
     Route: 055
  2. SYMBICORT [Suspect]
     Active Substance: BUDESONIDE\FORMOTEROL FUMARATE DIHYDRATE
     Indication: ASTHMA
     Dosage: 2 PUFF(S), BID, 200/6MCG
  3. NUCALA [Concomitant]
     Active Substance: MEPOLIZUMAB
     Indication: ASTHMA
     Dosage: 100 MG, Z, MONTHLY
     Route: 042
     Dates: start: 20191028
  4. PREDNISONE. [Suspect]
     Active Substance: PREDNISONE
     Indication: CONDITION AGGRAVATED
     Dosage: UNK, PRN FOR FLARE ONLY
  5. SPIRIVA [Suspect]
     Active Substance: TIOTROPIUM BROMIDE MONOHYDRATE
     Indication: ASTHMA
     Dosage: 2 PUFF(S), QD, 2.5UG

REACTIONS (7)
  - Sleep disorder due to a general medical condition [Recovering/Resolving]
  - Hospitalisation [Unknown]
  - Loss of personal independence in daily activities [Recovering/Resolving]
  - Dyspnoea [Recovering/Resolving]
  - Wheezing [Recovering/Resolving]
  - Therapeutic product effect incomplete [Unknown]
  - Asthma [Recovering/Resolving]
